FAERS Safety Report 19952839 (Version 1)
Quarter: 2021Q4

REPORT INFORMATION
  Report Type: Spontaneous
  Country: CO (occurrence: CO)
  Receive Date: 20211013
  Receipt Date: 20211013
  Transmission Date: 20220303
  Serious: Yes (Hospitalization)
  Sender: FDA-Public Use
  Company Number: CO-AMNEAL PHARMACEUTICALS-2021-AMRX-04152

PATIENT
  Age: 13 Year
  Sex: Male
  Weight: 64 kg

DRUGS (2)
  1. NEOSTIGMINE METHYLSULFATE [Suspect]
     Active Substance: NEOSTIGMINE METHYLSULFATE
     Indication: Neuromuscular blockade reversal
     Dosage: 1 MILLIGRAM, SINGLE
     Route: 065
  2. ATROPINE [Concomitant]
     Active Substance: ATROPINE
     Indication: Neuromuscular blockade reversal
     Dosage: 0.5 MILLIGRAM, SINGLE
     Route: 065

REACTIONS (2)
  - Pulmonary oedema [Recovered/Resolved]
  - Cholinergic syndrome [Recovered/Resolved]
